FAERS Safety Report 23778341 (Version 2)
Quarter: 2025Q2

REPORT INFORMATION
  Report Type: Report from Study
  Country: CA (occurrence: CA)
  Receive Date: 20240424
  Receipt Date: 20250506
  Transmission Date: 20250716
  Serious: Yes (Other)
  Sender: SANDOZ
  Company Number: CA-SANDOZ-SDZ2024CA034345

PATIENT
  Age: 61 Year
  Sex: Female

DRUGS (1)
  1. HYRIMOZ [Suspect]
     Active Substance: ADALIMUMAB-ADAZ
     Indication: Colitis ulcerative
     Dosage: 40 MG, Q2W, BIWEEKLY
     Route: 058
     Dates: start: 20220720

REACTIONS (7)
  - Acute febrile neutrophilic dermatosis [Recovering/Resolving]
  - Frequent bowel movements [Unknown]
  - Rash [Unknown]
  - Herpes zoster [Unknown]
  - Headache [Unknown]
  - Pyrexia [Unknown]
  - Inappropriate schedule of product administration [Unknown]

NARRATIVE: CASE EVENT DATE: 20240301
